FAERS Safety Report 5392654-0 (Version None)
Quarter: 2007Q3

REPORT INFORMATION
  Report Type: 
  Country: None (occurrence: None)
  Receive Date: 20070720
  Receipt Date: 20070711
  Transmission Date: 20080115
  Serious: Yes (Congenital Anomaly)
  Sender: FDA-Public Use
  Company Number: GB-ABBOTT-06P-167-0346878-00

PATIENT
  Sex: Female

DRUGS (1)
  1. EPILIM [Suspect]
     Indication: DRUG EXPOSURE DURING PREGNANCY
     Route: 064

REACTIONS (10)
  - COGNITIVE DISORDER [None]
  - COORDINATION ABNORMAL [None]
  - DEVELOPMENTAL DELAY [None]
  - DYSMORPHISM [None]
  - EXPRESSIVE LANGUAGE DISORDER [None]
  - FOETAL ANTICONVULSANT SYNDROME [None]
  - GENERAL PHYSICAL CONDITION ABNORMAL [None]
  - HYPERACUSIS [None]
  - NEURODEVELOPMENTAL DISORDER [None]
  - STRABISMUS [None]
